FAERS Safety Report 4824725-9 (Version None)
Quarter: 2005Q4

REPORT INFORMATION
  Report Type: 
  Country: None (occurrence: None)
  Receive Date: 20051110
  Receipt Date: 20051103
  Transmission Date: 20060501
  Serious: Yes (Hospitalization)
  Sender: FDA-Public Use
  Company Number: US-BRISTOL-MYERS SQUIBB COMPANY-13174594

PATIENT
  Age: 62 Year
  Sex: Male
  Weight: 70 kg

DRUGS (3)
  1. PROLIXIN [Suspect]
     Route: 048
     Dates: start: 20050402, end: 20050406
  2. ATIVAN [Concomitant]
  3. ASPIRIN [Concomitant]

REACTIONS (5)
  - ABASIA [None]
  - APHONIA [None]
  - DIZZINESS [None]
  - LOSS OF CONTROL OF LEGS [None]
  - PAIN IN EXTREMITY [None]
